FAERS Safety Report 8285419 (Version 7)
Quarter: 2012Q4

REPORT INFORMATION
  Report Type: Report from Study
  Country: JP (occurrence: JP)
  Receive Date: 20111213
  Receipt Date: 20120913
  Transmission Date: 20130627
  Serious: Yes (Life-Threatening, Hospitalization)
  Sender: FDA-Public Use
  Company Number: JP-JNJFOC-20111202003

PATIENT
  Age: 67 Year
  Sex: Male
  Weight: 74 kg

DRUGS (24)
  1. USTEKINUMAB [Suspect]
     Indication: PSORIASIS
     Route: 058
     Dates: start: 20110706, end: 20110706
  2. USTEKINUMAB [Suspect]
     Indication: PSORIASIS
     Route: 058
     Dates: start: 20110803, end: 20110803
  3. PREDONINE [Suspect]
     Indication: PRODUCT USED FOR UNKNOWN INDICATION
     Route: 050
     Dates: start: 20111014, end: 20111027
  4. PREDONINE [Suspect]
     Indication: PRODUCT USED FOR UNKNOWN INDICATION
     Route: 048
     Dates: start: 20111028, end: 20111228
  5. KERATINAMIN [Concomitant]
     Indication: PSORIASIS
     Route: 061
  6. HUMULIN INSULIN [Concomitant]
     Route: 058
  7. LEVEMIR [Concomitant]
     Route: 058
  8. MICARDIS [Concomitant]
     Route: 048
  9. LASIX [Concomitant]
     Route: 048
  10. INSULIN [Concomitant]
     Route: 058
  11. CICLOSPORIN [Concomitant]
     Indication: PSORIASIS
     Dates: start: 20110706, end: 20110805
  12. CICLOSPORIN [Concomitant]
     Indication: PSORIASIS
     Dates: start: 201107
  13. GLIMEPIRIDE [Concomitant]
     Route: 048
  14. SENNOSIDE [Concomitant]
     Route: 048
  15. BROTIZOLAM [Concomitant]
     Route: 048
  16. ALLEGRA [Concomitant]
     Indication: PSORIASIS
     Route: 048
  17. MECOBALAMIN [Concomitant]
     Route: 048
  18. NEUROTROPIN [Concomitant]
     Route: 048
  19. REBAMIPIDE [Concomitant]
     Route: 048
  20. HYDROCORTISONE BUTYRATE [Concomitant]
     Indication: PSORIASIS
     Route: 061
  21. BETAMETHASONE BUTYRATE [Concomitant]
     Indication: PSORIASIS
     Route: 061
  22. HEPARINOID [Concomitant]
     Indication: PSORIASIS
     Route: 061
  23. LIDOMEX [Concomitant]
     Indication: PSORIASIS
     Route: 061
  24. ETRETINATE [Concomitant]
     Dates: end: 201107

REACTIONS (3)
  - Eosinophilic pneumonia [Recovered/Resolved]
  - Cellulitis [Recovered/Resolved]
  - Gastric ulcer [Recovering/Resolving]
